FAERS Safety Report 8605605-X (Version None)
Quarter: 2012Q3

REPORT INFORMATION
  Report Type: 
  Country: None (occurrence: None)
  Receive Date: 20120820
  Receipt Date: 20120615
  Transmission Date: 20120928
  Serious: Yes (Other)
  Sender: FDA-Public Use
  Company Number: JP-009507513-1208JPN007382

PATIENT

DRUGS (15)
  1. REBETOL [Suspect]
     Dosage: 200MG/EVERY OTHER DAY
     Route: 048
     Dates: start: 20120703
  2. TELAVIC [Suspect]
     Dosage: 750 MG, ONCE
     Route: 048
     Dates: start: 20120605, end: 20120611
  3. PEG-INTRON [Suspect]
     Dosage: 1.63MCG/KG/WEEK
     Route: 058
     Dates: start: 20120424, end: 20120430
  4. PEG-INTRON [Suspect]
     Dosage: 1.08MCG/KG/WEEK
     Route: 058
     Dates: start: 20120612
  5. DOGMATYL [Suspect]
     Indication: ADVERSE EVENT
     Route: 048
     Dates: start: 20120418, end: 20120710
  6. REBETOL [Suspect]
     Indication: HEPATITIS C
     Route: 048
     Dates: start: 20120417, end: 20120521
  7. PEG-INTRON [Suspect]
     Indication: HEPATITIS C
     Dosage: 2.0MCG/KG/WEEK
     Route: 058
     Dates: start: 20120417, end: 20120423
  8. PEG-INTRON [Suspect]
     Dosage: 1.22MCG/KG/WEEK
     Route: 058
     Dates: start: 20120501
  9. TELAVIC [Suspect]
     Indication: HEPATITIS C
     Route: 048
     Dates: start: 20120417, end: 20120604
  10. REBETOL [Suspect]
     Route: 048
     Dates: start: 20120522, end: 20120604
  11. LOSARTAN POTASSIUM AND HYDROCHLOROTHIAZIDE [Concomitant]
     Indication: HYPERTENSION
     Route: 048
     Dates: start: 20120605
  12. TELAVIC [Suspect]
     Route: 048
     Dates: start: 20120612, end: 20120618
  13. PEG-INTRON [Suspect]
     Dosage: 1.3MCG/KG/WEEK
     Route: 058
     Dates: end: 20120611
  14. REBETOL [Suspect]
     Route: 048
     Dates: start: 20120605, end: 20120611
  15. DEPAS [Suspect]
     Indication: ADVERSE EVENT
     Route: 048
     Dates: start: 20120508

REACTIONS (2)
  - ANAEMIA [None]
  - HAEMOGLOBIN DECREASED [None]
